FAERS Safety Report 8846249 (Version 1)
Quarter: 2012Q4

REPORT INFORMATION
  Report Type: 
  Country: US (occurrence: US)
  Receive Date: 20121017
  Receipt Date: 20121017
  Transmission Date: 20130627
  Serious: Yes (Hospitalization, Other)
  Sender: FDA-Public Use
  Company Number: US-BRISTOL-MYERS SQUIBB COMPANY-17027269

PATIENT
  Age: 68 Year
  Sex: Male
  Weight: 88 kg

DRUGS (3)
  1. AVAPRO TABS 150 MG [Suspect]
     Indication: HYPERTENSION
     Dosage: 1 Tabs and again started on 2 tabs once daily in Jul12
  2. PLAVIX [Suspect]
     Indication: CORONARY ARTERIAL STENT INSERTION
  3. HYDROCHLOROTHIAZIDE [Suspect]
     Dates: start: 20121001

REACTIONS (2)
  - Cerebrovascular accident [Unknown]
  - Blood glucose increased [Unknown]
